FAERS Safety Report 20111184 (Version 1)
Quarter: 2021Q4

REPORT INFORMATION
  Report Type: Report from Study
  Country: BR (occurrence: BR)
  Receive Date: 20211125
  Receipt Date: 20211125
  Transmission Date: 20220303
  Serious: Yes (Death)
  Sender: FDA-Public Use
  Company Number: BR-ABBVIE-21K-020-4173901-00

PATIENT
  Sex: Male

DRUGS (1)
  1. RINVOQ [Suspect]
     Active Substance: UPADACITINIB
     Indication: Rheumatoid arthritis
     Route: 048
     Dates: start: 20210714

REACTIONS (6)
  - Death [Fatal]
  - Immune system disorder [Unknown]
  - Diabetes mellitus [Unknown]
  - Bacterial infection [Unknown]
  - Fungal infection [Unknown]
  - Mass [Unknown]
